FAERS Safety Report 16820298 (Version 2)
Quarter: 2019Q3

REPORT INFORMATION
  Report Type: Spontaneous
  Country: US (occurrence: US)
  Receive Date: 20190918
  Receipt Date: 20190918
  Transmission Date: 20191005
  Serious: No
  Sender: FDA-Public Use
  Company Number: US-JNJFOC-20190919141

PATIENT
  Age: 41 Year
  Sex: Male
  Weight: 95.34 kg

DRUGS (1)
  1. MENS ROGAINE EXTRA STRENGTH [Suspect]
     Active Substance: MINOXIDIL
     Indication: ALOPECIA
     Dosage: AS PER DIRECTION, STARTED IT LAST MONDAY
     Route: 061
     Dates: start: 201909

REACTIONS (3)
  - Application site swelling [Recovered/Resolved]
  - Erythema [Recovered/Resolved]
  - Inappropriate schedule of product administration [Unknown]

NARRATIVE: CASE EVENT DATE: 201909
